FAERS Safety Report 5637254-X (Version None)
Quarter: 2008Q1

REPORT INFORMATION
  Report Type: 
  Country: None (occurrence: None)
  Receive Date: 20080225
  Receipt Date: 20070822
  Transmission Date: 20080703
  Serious: No
  Sender: FDA-Public Use
  Company Number: US-BRISTOL-MYERS SQUIBB COMPANY-13885132

PATIENT
  Sex: Male

DRUGS (1)
  1. KENALOG [Suspect]

REACTIONS (1)
  - SWELLING FACE [None]
